FAERS Safety Report 4325871-9 (Version None)
Quarter: 2004Q1

REPORT INFORMATION
  Report Type: 
  Country: None (occurrence: None)
  Receive Date: 20040329
  Receipt Date: 20010315
  Transmission Date: 20041129
  Serious: Yes (Hospitalization)
  Sender: FDA-Public Use
  Company Number: ZA-MERCK-01039609

PATIENT
  Age: 10 Year
  Sex: Female

DRUGS (5)
  1. CETIRIZINE HYDROCHLORIDE [Concomitant]
     Indication: ECZEMA
     Route: 065
  2. FLUTICASONE PROPIONATE [Concomitant]
     Indication: ASTHMA
     Route: 055
  3. SINGULAIR [Suspect]
     Indication: ASTHMA
     Route: 048
     Dates: start: 19990101, end: 20010301
  4. SALMETEROL XINAFOATE [Concomitant]
     Indication: ASTHMA
     Route: 055
  5. SALMETEROL XINAFOATE [Concomitant]
     Route: 065

REACTIONS (11)
  - ABDOMINAL PAIN [None]
  - ACTIVATED PARTIAL THROMBOPLASTIN TIME PROLONGED [None]
  - ACUTE ABDOMEN [None]
  - DERMATITIS ARTEFACTA [None]
  - EOSINOPHIL COUNT INCREASED [None]
  - HEADACHE [None]
  - NECK PAIN [None]
  - PURPURA [None]
  - VASCULITIC RASH [None]
  - VASCULITIS [None]
  - VOMITING [None]
